FAERS Safety Report 9294680 (Version 1)
Quarter: 2013Q2

REPORT INFORMATION
  Report Type: Report from Study
  Country: CA (occurrence: CA)
  Receive Date: 20130517
  Receipt Date: 20130517
  Transmission Date: 20140414
  Serious: Yes (Other)
  Sender: FDA-Public Use
  Company Number: CA-JNJFOC-20130507191

PATIENT
  Age: 38 Year
  Sex: Female
  Weight: 56 kg

DRUGS (1)
  1. REMICADE [Suspect]
     Indication: CROHN^S DISEASE
     Dosage: DOSE: ONCE EVERY 5 TO 6 WEEKS
     Route: 042
     Dates: start: 2003

REACTIONS (3)
  - Fall [Unknown]
  - Joint range of motion decreased [Unknown]
  - Laceration [Unknown]
